FAERS Safety Report 25379860 (Version 1)
Quarter: 2025Q2

REPORT INFORMATION
  Report Type: Spontaneous
  Country: US (occurrence: US)
  Receive Date: 20250530
  Receipt Date: 20250530
  Transmission Date: 20250716
  Serious: Yes (Other)
  Sender: GLAUKOS
  Company Number: US-GLK-000647

PATIENT
  Age: 36 Year
  Sex: Male

DRUGS (2)
  1. PHOTREXA VISCOUS [Suspect]
     Active Substance: RIBOFLAVIN 5^-PHOSPHATE SODIUM
     Indication: Product used for unknown indication
     Route: 047
     Dates: start: 202410, end: 202410
  2. PHOTREXA [Suspect]
     Active Substance: RIBOFLAVIN 5^-PHOSPHATE SODIUM
     Indication: Product used for unknown indication
     Route: 047
     Dates: start: 202410, end: 202410

REACTIONS (3)
  - Visual acuity reduced [Unknown]
  - Corneal thinning [Unknown]
  - Corneal opacity [Unknown]

NARRATIVE: CASE EVENT DATE: 20250428
